FAERS Safety Report 9336461 (Version 1)
Quarter: 2013Q2

REPORT INFORMATION
  Report Type: Spontaneous
  Country: DE (occurrence: DE)
  Receive Date: 20130607
  Receipt Date: 20130607
  Transmission Date: 20140414
  Serious: Yes (Death)
  Sender: FDA-Public Use
  Company Number: DE-ACCORD-017890

PATIENT
  Age: 40 Year
  Sex: Female
  Weight: 47 kg

DRUGS (9)
  1. CLONAZEPAM [Suspect]
  2. LEVETIRACETAM [Suspect]
  3. AGOMELATINE [Suspect]
  4. LACOSAMIDE [Suspect]
  5. CLOBAZAM [Suspect]
  6. LAMOTRIGINE [Suspect]
  7. CITALOPRAM [Suspect]
  8. LORAZEPAM [Suspect]
  9. ACETAZOLAMIDE [Suspect]

REACTIONS (2)
  - Toxicity to various agents [Fatal]
  - Completed suicide [Fatal]
